FAERS Safety Report 14814237 (Version 4)
Quarter: 2018Q3

REPORT INFORMATION
  Report Type: Report from Study
  Country: US (occurrence: US)
  Receive Date: 20180426
  Receipt Date: 20180702
  Transmission Date: 20181010
  Serious: Yes (Other)
  Sender: FDA-Public Use
  Company Number: US-ROCHE-2113351

PATIENT
  Sex: Male
  Weight: 100.33 kg

DRUGS (2)
  1. OCREVUS [Suspect]
     Active Substance: OCRELIZUMAB
     Route: 042
     Dates: start: 20180124
  2. OCREVUS [Suspect]
     Active Substance: OCRELIZUMAB
     Indication: RELAPSING MULTIPLE SCLEROSIS
     Route: 042
     Dates: start: 20180110

REACTIONS (3)
  - Staphylococcal infection [Not Recovered/Not Resolved]
  - Folliculitis [Recovered/Resolved]
  - Rash [Not Recovered/Not Resolved]
